FAERS Safety Report 5246461-X (Version None)
Quarter: 2007Q1

REPORT INFORMATION
  Report Type: 
  Country: None (occurrence: None)
  Receive Date: 20070216
  Receipt Date: 20070208
  Transmission Date: 20070707
  Serious: Yes (Death)
  Sender: FDA-Public Use
  Company Number: TCI2007A00564

PATIENT
  Sex: 0

DRUGS (1)
  1. LANSOPRAZOLE [Suspect]
     Indication: PEPTIC ULCER
     Dosage: 60 MG (60 MG, 1 D) INTRAVENOUS
     Route: 042
     Dates: start: 20070130, end: 20070131

REACTIONS (1)
  - MARASMUS [None]
